FAERS Safety Report 25394387 (Version 1)
Quarter: 2025Q2

REPORT INFORMATION
  Report Type: Spontaneous
  Country: DE (occurrence: DE)
  Receive Date: 20250604
  Receipt Date: 20250604
  Transmission Date: 20250717
  Serious: Yes (Hospitalization, Other)
  Sender: ALKEM
  Company Number: DE-ALKEM LABORATORIES LIMITED-DE-ALKEM-2025-05643

PATIENT
  Sex: Male
  Weight: 93 kg

DRUGS (3)
  1. ATORVASTATIN CALCIUM [Suspect]
     Active Substance: ATORVASTATIN CALCIUM
     Indication: Hypercholesterolaemia
     Dosage: 40 MILLIGRAM, QD
     Route: 048
     Dates: start: 20231222
  2. EZETIMIBE [Suspect]
     Active Substance: EZETIMIBE
     Indication: Hypercholesterolaemia
     Dosage: 10 MILLIGRAM, QD
     Route: 048
     Dates: start: 20240201
  3. INCLISIRAN [Suspect]
     Active Substance: INCLISIRAN
     Indication: Product used for unknown indication
     Route: 058
     Dates: start: 20250319

REACTIONS (4)
  - Pneumonia [Recovered/Resolved]
  - Dyspnoea [Recovered/Resolved]
  - Angina pectoris [Recovered/Resolved]
  - Coronary artery stenosis [Recovered/Resolved]

NARRATIVE: CASE EVENT DATE: 20250324
